FAERS Safety Report 5098706-7 (Version None)
Quarter: 2006Q3

REPORT INFORMATION
  Report Type: 
  Country: None (occurrence: None)
  Receive Date: 20060907
  Receipt Date: 20060828
  Transmission Date: 20061208
  Serious: Yes (Hospitalization)
  Sender: FDA-Public Use
  Company Number: 2006CG01421

PATIENT
  Age: 60 Year
  Sex: Female

DRUGS (7)
  1. NEXIUM [Suspect]
     Route: 048
  2. ANAFRANIL [Suspect]
     Route: 048
  3. CORTANCYL [Suspect]
     Route: 048
  4. ENBREL [Suspect]
     Dates: start: 20051215
  5. ARAVA [Suspect]
     Route: 048
     Dates: start: 20051215
  6. NEXEN [Suspect]
  7. HUMIRA [Concomitant]
     Dates: end: 20051215

REACTIONS (3)
  - EAR PAIN [None]
  - NEURALGIA [None]
  - PYREXIA [None]
